FAERS Safety Report 7554597-3 (Version None)
Quarter: 2011Q2

REPORT INFORMATION
  Report Type: 
  Country: None (occurrence: None)
  Receive Date: 20110617
  Receipt Date: 20110309
  Transmission Date: 20111010
  Serious: No
  Sender: FDA-Public Use
  Company Number: US-MYLANLABS-2011S1005240

PATIENT
  Age: 86 Year
  Sex: Female
  Weight: 40.82 kg

DRUGS (1)
  1. CARBIDOPA AND LEVODOPA [Suspect]
     Indication: PARKINSON'S DISEASE

REACTIONS (3)
  - WEIGHT DECREASED [None]
  - NAUSEA [None]
  - VOMITING [None]
